FAERS Safety Report 7495612-5 (Version None)
Quarter: 2011Q2

REPORT INFORMATION
  Report Type: 
  Country: None (occurrence: None)
  Receive Date: 20110523
  Receipt Date: 20110513
  Transmission Date: 20111010
  Serious: Yes (Other)
  Sender: FDA-Public Use
  Company Number: US-AMGEN-USASP2011022184

PATIENT
  Age: 45 Year
  Sex: Male
  Weight: 84.807 kg

DRUGS (5)
  1. INFLUENZA [Concomitant]
     Dosage: UNK
     Dates: start: 20101119
  2. NPLATE [Suspect]
     Indication: IDIOPATHIC THROMBOCYTOPENIC PURPURA
     Dates: start: 20081114, end: 20110121
  3. PNEUMOCOCCAL POLYSACCHARIDE VACCINE [Concomitant]
  4. MENINGOCOCCAL VACCINES [Concomitant]
     Dosage: UNK
     Dates: start: 20101001, end: 20101001
  5. ACTHIB/DTP [Concomitant]

REACTIONS (10)
  - PETECHIAE [None]
  - FATIGUE [None]
  - MYELODYSPLASTIC SYNDROME [None]
  - LEUKOPENIA [None]
  - PARAESTHESIA [None]
  - THROMBOCYTOPENIA [None]
  - DRUG INEFFECTIVE [None]
  - ANAEMIA MACROCYTIC [None]
  - PAROXYSMAL NOCTURNAL HAEMOGLOBINURIA [None]
  - LIVER FUNCTION TEST ABNORMAL [None]
